FAERS Safety Report 6628327-3 (Version None)
Quarter: 2010Q1

REPORT INFORMATION
  Report Type: 
  Country: None (occurrence: None)
  Receive Date: 20100311
  Receipt Date: 20100304
  Transmission Date: 20100710
  Serious: Yes (Other)
  Sender: FDA-Public Use
  Company Number: PL-PFIZER INC-2010028537

PATIENT
  Age: 60 Year
  Sex: Female

DRUGS (2)
  1. ATARAX [Suspect]
     Dosage: 10 MG, 1X/DAY
     Route: 048
     Dates: start: 20100115
  2. PAROXETINE [Concomitant]

REACTIONS (1)
  - VERTIGO [None]
